FAERS Safety Report 10769913 (Version 1)
Quarter: 2015Q1

REPORT INFORMATION
  Report Type: Spontaneous
  Country: US (occurrence: None)
  Receive Date: 20150204
  Receipt Date: 20150204
  Transmission Date: 20150721
  Serious: Yes (Death)
  Sender: FDA-Public Use
  Company Number: 2727384

PATIENT
  Age: 53 Year
  Sex: Male

DRUGS (6)
  1. VENLAFAXINE [Suspect]
     Active Substance: VENLAFAXINE HYDROCHLORIDE
     Dates: start: 2013, end: 2013
  2. DIPHENHYDRAMINE [Suspect]
     Active Substance: DIPHENHYDRAMINE
     Dates: start: 2013, end: 2013
  3. CITALOPRAM [Suspect]
     Active Substance: CITALOPRAM HYDROBROMIDE
     Dates: start: 2013, end: 2013
  4. QUETIAPINE [Suspect]
     Active Substance: QUETIAPINE
     Dates: start: 2013, end: 2013
  5. COCAINE [Suspect]
     Active Substance: COCAINE
     Dates: start: 2013, end: 2013
  6. ETHANOL [Suspect]
     Active Substance: ALCOHOL
     Dates: start: 2013, end: 2013

REACTIONS (2)
  - Completed suicide [None]
  - Poisoning [None]

NARRATIVE: CASE EVENT DATE: 2013
